FAERS Safety Report 7148625-7 (Version None)
Quarter: 2010Q4

REPORT INFORMATION
  Report Type: 
  Country: None (occurrence: None)
  Receive Date: 20101209
  Receipt Date: 20100910
  Transmission Date: 20110411
  Serious: No
  Sender: FDA-Public Use
  Company Number: A0881879A

PATIENT
  Age: 63 Year
  Sex: Female

DRUGS (1)
  1. AVANDAMET [Suspect]
     Route: 065
     Dates: start: 20030101, end: 20050101

REACTIONS (3)
  - CARDIAC DISORDER [None]
  - CHEST PAIN [None]
  - PAIN [None]
